FAERS Safety Report 9455795 (Version 1)
Quarter: 2013Q3

REPORT INFORMATION
  Report Type: Spontaneous
  Country: US (occurrence: US)
  Receive Date: 20130813
  Receipt Date: 20130813
  Transmission Date: 20140515
  Serious: Yes (Other)
  Sender: FDA-Public Use
  Company Number: US-BAYER-2013-095797

PATIENT
  Sex: Female

DRUGS (2)
  1. CIPRO [Suspect]
     Indication: URINARY TRACT INFECTION
     Dosage: UNK
     Dates: start: 20130627, end: 20130704
  2. CIPRO [Suspect]
     Indication: DIVERTICULITIS

REACTIONS (3)
  - Hallucination [None]
  - Candida infection [None]
  - Diarrhoea [None]
